FAERS Safety Report 9739922 (Version 2)
Quarter: 2013Q4

REPORT INFORMATION
  Report Type: Spontaneous
  Country: US (occurrence: US)
  Receive Date: 20131209
  Receipt Date: 20131209
  Transmission Date: 20140711
  Serious: No
  Sender: FDA-Public Use
  Company Number: US-ASTELLAS-2013US012518

PATIENT
  Age: 89 Year
  Sex: Male
  Weight: 82 kg

DRUGS (7)
  1. XTANDI [Suspect]
     Indication: PROSTATE CANCER
     Dosage: 160 MG, UID/QD
     Route: 048
     Dates: end: 20130801
  2. DEXAMETHASONE [Concomitant]
     Indication: PLASMA CELL MYELOMA
     Dosage: UNK
     Route: 065
  3. COUMADIN                           /00014802/ [Concomitant]
     Indication: THROMBOSIS
     Dosage: UNK
     Route: 065
  4. VELCADE [Concomitant]
     Indication: LYMPHOMA
     Dosage: UNK
     Route: 065
  5. LEVOTHYROXINE [Concomitant]
     Indication: THYROID DISORDER
     Dosage: UNK
     Route: 065
  6. SIMVASTATIN [Concomitant]
     Indication: BLOOD CHOLESTEROL
     Dosage: UNK
     Route: 065
  7. ACYCLOVIR                          /00587301/ [Concomitant]
     Indication: ANTIVIRAL TREATMENT
     Dosage: UNK
     Route: 065

REACTIONS (6)
  - Off label use [Unknown]
  - Drug ineffective [Unknown]
  - Drug intolerance [Unknown]
  - Dizziness [Unknown]
  - Headache [Unknown]
  - Asthenia [Unknown]
